FAERS Safety Report 12885199 (Version 1)
Quarter: 2016Q4

REPORT INFORMATION
  Report Type: Report from Study
  Country: AU (occurrence: AU)
  Receive Date: 20161026
  Receipt Date: 20161026
  Transmission Date: 20170207
  Serious: Yes (Death)
  Sender: FDA-Public Use
  Company Number: AU-ASTRAZENECA-2013SE71348

PATIENT
  Age: 25349 Day
  Sex: Male

DRUGS (2)
  1. ZOLADEX [Suspect]
     Active Substance: GOSERELIN ACETATE
     Indication: PROSTATE CANCER
     Dosage: 10.8MG UNKNOWN
     Route: 058
     Dates: start: 20130723
  2. CASODEX [Suspect]
     Active Substance: BICALUTAMIDE
     Indication: PROSTATE CANCER
     Dosage: 50.0MG UNKNOWN
     Route: 048
     Dates: start: 20130723

REACTIONS (4)
  - Hyperhidrosis [Unknown]
  - Weight increased [Unknown]
  - Feeling cold [Unknown]
  - Death [Fatal]

NARRATIVE: CASE EVENT DATE: 20130723
